FAERS Safety Report 17867255 (Version 1)
Quarter: 2020Q2

REPORT INFORMATION
  Report Type: Spontaneous
  Country: FR (occurrence: FR)
  Receive Date: 20200605
  Receipt Date: 20200605
  Transmission Date: 20200714
  Serious: Yes (Life-Threatening, Hospitalization)
  Sender: FDA-Public Use
  Company Number: FR-MYLANLABS-2020M1054698

PATIENT
  Age: 88 Year
  Sex: Female
  Weight: 63 kg

DRUGS (11)
  1. XARELTO [Concomitant]
     Active Substance: RIVAROXABAN
  2. PROZAC [Concomitant]
     Active Substance: FLUOXETINE HYDROCHLORIDE
  3. PERINDOPRIL [Concomitant]
     Active Substance: PERINDOPRIL
  4. CORDARONE [Concomitant]
     Active Substance: AMIODARONE HYDROCHLORIDE
  5. ZYMAD [Concomitant]
     Active Substance: CHOLECALCIFEROL
  6. CACIT VITAMINE D3 [Concomitant]
     Active Substance: CALCIUM CARBONATE\CHOLECALCIFEROL
  7. IPERTEN [Concomitant]
     Active Substance: MANIDIPINE
  8. NERISONE C [Concomitant]
  9. INDAPAMIDE. [Suspect]
     Active Substance: INDAPAMIDE
     Indication: HYPERTENSION
     Dosage: 1.25 MILLIGRAM, QD
     Route: 048
     Dates: end: 20200511
  10. NASONEX [Concomitant]
     Active Substance: MOMETASONE FUROATE
  11. HYPERIUM [Concomitant]
     Active Substance: RILMENIDINE PHOSPHATE

REACTIONS (3)
  - Electrocardiogram QT prolonged [Not Recovered/Not Resolved]
  - Hypokalaemia [Recovered/Resolved]
  - Fall [Not Recovered/Not Resolved]

NARRATIVE: CASE EVENT DATE: 20200505
